FAERS Safety Report 6747760-2 (Version None)
Quarter: 2010Q2

REPORT INFORMATION
  Report Type: 
  Country: None (occurrence: None)
  Receive Date: 20100528
  Receipt Date: 20100526
  Transmission Date: 20101027
  Serious: Yes (Other)
  Sender: FDA-Public Use
  Company Number: US-JNJCH-2010012428

PATIENT
  Sex: Male

DRUGS (1)
  1. CHILDREN'S ZYRTEC ALLERGY [Suspect]
     Indication: MALAISE
     Dosage: TEXT:UNKNOWN
     Route: 048
     Dates: start: 20090901, end: 20100401

REACTIONS (3)
  - BACTERIAL INFECTION [None]
  - PRODUCT QUALITY ISSUE [None]
  - SURGERY [None]
